FAERS Safety Report 4560859-4 (Version None)
Quarter: 2005Q1

REPORT INFORMATION
  Report Type: 
  Country: None (occurrence: None)
  Receive Date: 20050121
  Receipt Date: 20050110
  Transmission Date: 20050727
  Serious: Yes (Hospitalization)
  Sender: FDA-Public Use
  Company Number: 2004UW26079

PATIENT
  Age: 47 Year
  Sex: Male

DRUGS (1)
  1. CRESTOR [Suspect]
     Dosage: 10 MG PO
     Route: 048
     Dates: start: 20030101

REACTIONS (3)
  - BACK PAIN [None]
  - DIABETES MELLITUS [None]
  - MYOCARDIAL INFARCTION [None]
